FAERS Safety Report 5801899-4 (Version None)
Quarter: 2008Q3

REPORT INFORMATION
  Report Type: 
  Country: None (occurrence: None)
  Receive Date: 20080707
  Receipt Date: 20080630
  Transmission Date: 20090109
  Serious: Yes (Hospitalization)
  Sender: FDA-Public Use
  Company Number: AU-ASTRAZENECA-2008AP05051

PATIENT
  Age: 38 Year
  Sex: Female
  Weight: 54 kg

DRUGS (9)
  1. ENTOCORT EC [Suspect]
     Indication: CROHN'S DISEASE
     Route: 048
  2. DEXAMETHASONE [Suspect]
  3. PREDNISOLONE [Suspect]
     Indication: CROHN'S DISEASE
  4. AMITRIPTYLINE HYDROCHLORIDE [Concomitant]
  5. CALTRATE [Concomitant]
  6. MESALAMINE [Concomitant]
  7. NEXIUM [Concomitant]
  8. ZOLPIDEM TARTRATE [Concomitant]
  9. TRAMADOL HCL [Concomitant]

REACTIONS (3)
  - ADRENAL INSUFFICIENCY [None]
  - OSTEONECROSIS [None]
  - OSTEOPOROSIS [None]
